FAERS Safety Report 15802835 (Version 1)
Quarter: 2019Q1

REPORT INFORMATION
  Report Type: Report from Study
  Country: GB (occurrence: GB)
  Receive Date: 20190109
  Receipt Date: 20190109
  Transmission Date: 20190417
  Serious: Yes (Other)
  Sender: FDA-Public Use
  Company Number: GB-JNJFOC-20190108297

PATIENT
  Age: 19 Year
  Sex: Male

DRUGS (1)
  1. STELARA [Suspect]
     Active Substance: USTEKINUMAB
     Indication: CROHN^S DISEASE
     Route: 058
     Dates: start: 20180510

REACTIONS (5)
  - Crohn^s disease [Unknown]
  - Gastrointestinal stoma complication [Unknown]
  - Malnutrition [Unknown]
  - Colectomy total [Unknown]
  - Product dose omission [Unknown]

NARRATIVE: CASE EVENT DATE: 20190104
